FAERS Safety Report 19948055 (Version 1)
Quarter: 2021Q4

REPORT INFORMATION
  Report Type: Spontaneous
  Country: US (occurrence: US)
  Receive Date: 20211012
  Receipt Date: 20211012
  Transmission Date: 20220303
  Serious: Yes (Hospitalization, Other)
  Sender: FDA-Public Use
  Company Number: US-SA-SAC20211011001108

PATIENT
  Age: 52 Year
  Sex: Male

DRUGS (1)
  1. CAPRELSA [Suspect]
     Active Substance: VANDETANIB
     Indication: Thyroid cancer
     Dosage: 200 MG
     Route: 048
     Dates: start: 20150516

REACTIONS (3)
  - Sepsis [Unknown]
  - Urinary tract obstruction [Unknown]
  - Nephrolithiasis [Unknown]
